FAERS Safety Report 6604222-0 (Version None)
Quarter: 2010Q1

REPORT INFORMATION
  Report Type: 
  Country: None (occurrence: None)
  Receive Date: 20100226
  Receipt Date: 20090708
  Transmission Date: 20100710
  Serious: Yes (Other)
  Sender: FDA-Public Use
  Company Number: A0795904A

PATIENT
  Age: 12 Year
  Sex: Female

DRUGS (1)
  1. LAMICTAL CD [Suspect]
     Indication: DRUG USE FOR UNKNOWN INDICATION
     Route: 048
     Dates: start: 20090101, end: 20090101

REACTIONS (2)
  - SKIN DISCOLOURATION [None]
  - STEVENS-JOHNSON SYNDROME [None]
